FAERS Safety Report 6905891 (Version 3)
Quarter: 2012Q4

REPORT INFORMATION
  Report Type: 
  Country: US (occurrence: US)
  Receive Date: 20090210
  Receipt Date: 20121112
  Transmission Date: 20130627
  Serious: Yes (Hospitalization, Other)
  Sender: FDA-Public Use
  Company Number: US-ASTRAZENECA-2009UW03042

PATIENT
  Age: 62 Year
  Sex: Female
  Weight: 99.8 kg

DRUGS (29)
  1. SEROQUEL [Suspect]
     Indication: SLEEP DISORDER
     Dosage: 100 MG IN AM, 900 MG IN AFTERNOON, AND 100 MG AT NIGHT
     Route: 048
     Dates: start: 2005
  2. SEROQUEL [Suspect]
     Indication: BIPOLAR II DISORDER
     Dosage: 100 MG IN AM, 900 MG IN AFTERNOON, AND 100 MG AT NIGHT
     Route: 048
     Dates: start: 2005
  3. SEROQUEL [Suspect]
     Indication: BIPOLAR I DISORDER
     Dosage: 100 MG IN AM, 900 MG IN AFTERNOON, AND 100 MG AT NIGHT
     Route: 048
     Dates: start: 2005
  4. SEROQUEL [Suspect]
     Indication: OBSESSIVE-COMPULSIVE DISORDER
     Dosage: 100 MG IN AM, 900 MG IN AFTERNOON, AND 100 MG AT NIGHT
     Route: 048
     Dates: start: 2005
  5. SEROQUEL [Suspect]
     Indication: SLEEP DISORDER
     Route: 048
     Dates: start: 200505, end: 2010
  6. SEROQUEL [Suspect]
     Indication: BIPOLAR II DISORDER
     Route: 048
     Dates: start: 200505, end: 2010
  7. SEROQUEL [Suspect]
     Indication: BIPOLAR I DISORDER
     Route: 048
     Dates: start: 200505, end: 2010
  8. SEROQUEL [Suspect]
     Indication: OBSESSIVE-COMPULSIVE DISORDER
     Route: 048
     Dates: start: 200505, end: 2010
  9. SEROQUEL [Suspect]
     Indication: SLEEP DISORDER
     Route: 048
     Dates: start: 2010
  10. SEROQUEL [Suspect]
     Indication: BIPOLAR II DISORDER
     Route: 048
     Dates: start: 2010
  11. SEROQUEL [Suspect]
     Indication: BIPOLAR I DISORDER
     Route: 048
     Dates: start: 2010
  12. SEROQUEL [Suspect]
     Indication: OBSESSIVE-COMPULSIVE DISORDER
     Route: 048
     Dates: start: 2010
  13. SEROQUEL [Suspect]
     Indication: SLEEP DISORDER
     Route: 048
     Dates: start: 2005
  14. SEROQUEL [Suspect]
     Indication: BIPOLAR II DISORDER
     Route: 048
     Dates: start: 2005
  15. SEROQUEL [Suspect]
     Indication: BIPOLAR I DISORDER
     Route: 048
     Dates: start: 2005
  16. SEROQUEL [Suspect]
     Indication: OBSESSIVE-COMPULSIVE DISORDER
     Route: 048
     Dates: start: 2005
  17. LITHIUM [Concomitant]
  18. CLONOPIN [Concomitant]
  19. SYNTHROID [Concomitant]
  20. DIOVAN [Concomitant]
  21. ALLEGRA [Concomitant]
  22. AVANDIA [Concomitant]
     Indication: DIABETES MELLITUS
     Route: 048
  23. TRAZADONE [Concomitant]
  24. LISINOPRIL [Concomitant]
     Indication: HYPERTENSION
  25. METFORMIN [Concomitant]
     Indication: HYPERTENSION
  26. NUVIGIL [Concomitant]
     Indication: SLEEP APNOEA SYNDROME
     Route: 048
  27. FISH OIL [Concomitant]
  28. VITAMIN D [Concomitant]
  29. LITHIUM CARBONATE XR [Concomitant]
     Indication: BIPOLAR DISORDER
     Route: 048

REACTIONS (18)
  - Dehydration [Unknown]
  - Renal failure [Unknown]
  - Myocardial infarction [Unknown]
  - Uterine cancer [Unknown]
  - Balance disorder [Unknown]
  - Chest pain [Unknown]
  - Concussion [Unknown]
  - Diabetes mellitus [Unknown]
  - Hypertension [Unknown]
  - Memory impairment [Unknown]
  - Metabolic syndrome [Unknown]
  - Plantar fasciitis [Recovering/Resolving]
  - Post-traumatic amnestic disorder [Unknown]
  - Physical assault [Unknown]
  - Hypothyroidism [Unknown]
  - Radiculopathy [Unknown]
  - Lower respiratory tract infection [Unknown]
  - Weight increased [Unknown]
